FAERS Safety Report 20475998 (Version 2)
Quarter: 2022Q1

REPORT INFORMATION
  Report Type: Spontaneous
  Country: US (occurrence: US)
  Receive Date: 20220215
  Receipt Date: 20220311
  Transmission Date: 20220423
  Serious: No
  Sender: FDA-Public Use
  Company Number: US-BIOMARINAP-US-2022-141285

PATIENT
  Age: 9 Year
  Sex: Male

DRUGS (1)
  1. VIMIZIM [Suspect]
     Active Substance: ELOSULFASE ALFA
     Indication: Product used for unknown indication
     Dosage: UNK
     Route: 042
     Dates: start: 20140324

REACTIONS (1)
  - Umbilical hernia [Not Recovered/Not Resolved]
